FAERS Safety Report 5298262-4 (Version None)
Quarter: 2007Q2

REPORT INFORMATION
  Report Type: 
  Country: None (occurrence: None)
  Receive Date: 20070416
  Receipt Date: 20070315
  Transmission Date: 20071010
  Serious: Yes (Hospitalization)
  Sender: FDA-Public Use
  Company Number: JP-BOEHRINGER INGELHEIM PHARMACEUTICALS, INC.-2007-BP-03784NB

PATIENT
  Sex: Male

DRUGS (5)
  1. MICARDIS [Suspect]
     Indication: HYPERTENSION
     Route: 048
     Dates: start: 20061201, end: 20070302
  2. AMLODIN [Suspect]
     Indication: HYPERTENSION
     Route: 048
     Dates: start: 20061201, end: 20070302
  3. URSO 250 [Concomitant]
     Indication: CHOLECYSTITIS
     Route: 048
  4. AMARYL [Concomitant]
     Indication: DIABETES MELLITUS
     Route: 048
  5. RIZE (CLOTIAZEPAM) [Concomitant]
     Indication: ANXIETY
     Route: 048

REACTIONS (4)
  - CHOLECYSTITIS [None]
  - DIABETES MELLITUS [None]
  - HYPERTENSION [None]
  - RASH [None]
